FAERS Safety Report 15673930 (Version 1)
Quarter: 2018Q4

REPORT INFORMATION
  Report Type: Spontaneous
  Country: US (occurrence: US)
  Receive Date: 20181129
  Receipt Date: 20181129
  Transmission Date: 20190205
  Serious: No
  Sender: FDA-Public Use
  Company Number: US-009507513-1811USA002849

PATIENT
  Age: 55 Year
  Sex: Female

DRUGS (4)
  1. ZOFRAN [Concomitant]
     Active Substance: ONDANSETRON HYDROCHLORIDE
  2. DEXAMETHASONE. [Concomitant]
     Active Substance: DEXAMETHASONE
  3. EMEND [Suspect]
     Active Substance: APREPITANT
     Dosage: UNK
     Route: 042
     Dates: start: 20181105
  4. TYLENOL [Concomitant]
     Active Substance: ACETAMINOPHEN

REACTIONS (1)
  - Infusion site pain [Recovered/Resolved]

NARRATIVE: CASE EVENT DATE: 20181105
